FAERS Safety Report 25100202 (Version 2)
Quarter: 2025Q2

REPORT INFORMATION
  Report Type: Spontaneous
  Country: IT (occurrence: IT)
  Receive Date: 20250320
  Receipt Date: 20250428
  Transmission Date: 20250716
  Serious: Yes (Hospitalization, Other)
  Sender: ACCORD
  Company Number: None

PATIENT
  Age: 90 Year
  Sex: Female

DRUGS (17)
  1. APIXABAN [Suspect]
     Active Substance: APIXABAN
     Indication: Atrial fibrillation
     Dosage: 2.5 MG TWICE A DAY: 1 TABLET AT 8 HR + 1 TABLET AT 20 HOURS
     Dates: start: 202308, end: 20250110
  2. PREDNISONE [Concomitant]
     Active Substance: PREDNISONE
     Indication: Polychondritis
  3. OMEPRAZOLE SODIUM [Concomitant]
     Active Substance: OMEPRAZOLE SODIUM
     Dosage: 20 MG 1 TABLET 8 HOURS
  4. PALEXIA [Concomitant]
     Active Substance: TAPENTADOL HYDROCHLORIDE
     Indication: Neuralgia
     Dosage: MG 1/2 TABLET AT 8 HOURS AND 1 TABLET AT 22 HOURS
  5. PERINDOPRIL [Concomitant]
     Active Substance: PERINDOPRIL
     Indication: Hypertension
  6. CYMBALTA [Concomitant]
     Active Substance: DULOXETINE HYDROCHLORIDE
     Indication: Depression
     Dosage: 30 MG 1 TABLET 8 HOURS
  7. SOTALOL [Concomitant]
     Active Substance: SOTALOL
     Indication: Arrhythmia
     Dosage: 80 MG 1/2 TABLET AT 8 HOURS AND 1/2 TABLET AT 20 HOURS
  8. HYDROXYUREA [Concomitant]
     Active Substance: HYDROXYUREA
     Dates: end: 20250114
  9. PLAVIX [Concomitant]
     Active Substance: CLOPIDOGREL BISULFATE
     Indication: Myocardial ischaemia
     Dates: end: 20250114
  10. FUROSEMIDE [Concomitant]
     Active Substance: FUROSEMIDE
     Indication: Hypertension
     Dosage: 25 MG 1 TABLET AT 12 HOURS
  11. LUVION [Concomitant]
     Indication: Hypertension
     Dosage: 50 MG 1/2 TABLET AT 12 HOURS
  12. PRAMIPEXOLE [Concomitant]
     Active Substance: PRAMIPEXOLE
     Indication: Restless legs syndrome
     Dosage: 0.7 MG 1 TABLET AT 20 HOURS
  13. ATORVASTATIN [Concomitant]
     Active Substance: ATORVASTATIN
     Indication: Dyslipidaemia
     Dosage: 20 MG 1 TABLET AT 20 HOURS
  14. PREGABALIN [Concomitant]
     Active Substance: PREGABALIN
     Indication: Neuralgia
     Dosage: 25 MG 1 TABLET AT 22 HOURS
  15. XANAX [Concomitant]
     Active Substance: ALPRAZOLAM
     Dosage: 0.75 MG/ML 5 DROPS AT 22 HOURS
  16. CHOLECALCIFEROL [Concomitant]
     Active Substance: CHOLECALCIFEROL
     Indication: Vitamin D deficiency
  17. DENOSUMAB [Concomitant]
     Active Substance: DENOSUMAB
     Indication: Osteoporosis

REACTIONS (4)
  - Auricular haematoma [Recovered/Resolved]
  - Subdural haematoma [Recovering/Resolving]
  - Craniocerebral injury [Recovering/Resolving]
  - Ear haemorrhage [Recovering/Resolving]

NARRATIVE: CASE EVENT DATE: 20250110
